FAERS Safety Report 5339086-9 (Version None)
Quarter: 2007Q2

REPORT INFORMATION
  Report Type: 
  Country: None (occurrence: None)
  Receive Date: 20070330
  Receipt Date: 20061121
  Transmission Date: 20071010
  Serious: Yes (Other)
  Sender: FDA-Public Use
  Company Number: PHEH2005US01574

PATIENT
  Age: 54 Year
  Sex: Female

DRUGS (2)
  1. VIVELLE-DOT [Suspect]
     Indication: MENOPAUSE
     Dosage: TWICE WEEKLY, TRANSDERMAL
     Route: 062
  2. PREMARIN [Suspect]
     Dosage: TWICE WEEKLY, TRANSDERMAL
     Route: 062

REACTIONS (14)
  - ANXIETY [None]
  - APPLICATION SITE ERYTHEMA [None]
  - COLD SWEAT [None]
  - DYSPHONIA [None]
  - EYE IRRITATION [None]
  - FATIGUE [None]
  - HEADACHE [None]
  - HOT FLUSH [None]
  - MALAISE [None]
  - MENOPAUSAL SYMPTOMS [None]
  - MIDDLE INSOMNIA [None]
  - NIGHT SWEATS [None]
  - RASH GENERALISED [None]
  - VULVOVAGINAL MYCOTIC INFECTION [None]
